FAERS Safety Report 5087469-7 (Version None)
Quarter: 2006Q3

REPORT INFORMATION
  Report Type: 
  Country: None (occurrence: None)
  Receive Date: 20060824
  Receipt Date: 20060817
  Transmission Date: 20061208
  Serious: Yes (Other)
  Sender: FDA-Public Use
  Company Number: CH-AVENTIS-200618651GDDC

PATIENT
  Age: 48 Year
  Sex: Female

DRUGS (3)
  1. FLAGYL [Suspect]
     Indication: COLITIS ULCERATIVE
     Route: 042
     Dates: start: 20060726, end: 20060727
  2. ACETAMINOPHEN [Suspect]
     Indication: PAIN
     Route: 048
     Dates: start: 20060630, end: 20060722
  3. ROCEPHIN [Suspect]
     Indication: COLITIS ULCERATIVE
     Route: 042
     Dates: start: 20060726, end: 20060727

REACTIONS (3)
  - HEPATITIS [None]
  - HEPATOCELLULAR DAMAGE [None]
  - ISCHAEMIC HEPATITIS [None]
